FAERS Safety Report 7038404-3 (Version None)
Quarter: 2010Q4

REPORT INFORMATION
  Report Type: 
  Country: None (occurrence: None)
  Receive Date: 20101011
  Receipt Date: 20100202
  Transmission Date: 20110411
  Serious: Yes (Other)
  Sender: FDA-Public Use
  Company Number: US-PFIZER INC-2010015698

PATIENT
  Sex: Female
  Weight: 49.887 kg

DRUGS (4)
  1. NEURONTIN [Suspect]
     Indication: TRIGEMINAL NEURALGIA
     Dosage: UNK
  2. VICODIN [Concomitant]
     Indication: BREAKTHROUGH PAIN
  3. TRILEPTAL [Concomitant]
  4. LISINOPRIL [Concomitant]
     Indication: HYPERTENSION
     Dosage: 10 MG, 1X/DAY

REACTIONS (6)
  - DRUG INEFFECTIVE [None]
  - DYSARTHRIA [None]
  - FEELING ABNORMAL [None]
  - FEELING DRUNK [None]
  - MEMORY IMPAIRMENT [None]
  - SOMNOLENCE [None]
